FAERS Safety Report 6072080-1 (Version None)
Quarter: 2009Q1

REPORT INFORMATION
  Report Type: 
  Country: None (occurrence: None)
  Receive Date: 20090210
  Receipt Date: 20090129
  Transmission Date: 20090719
  Serious: Yes (Death)
  Sender: FDA-Public Use
  Company Number: NO-ASTRAZENECA-2009SE00500

PATIENT
  Age: 8496 Day
  Sex: Female

DRUGS (3)
  1. QUETIAPINE FUMARATE [Suspect]
     Indication: MENTAL DISORDER
     Dosage: OVERDOSE
     Route: 048
  2. AMPHETAMINE SULFATE [Suspect]
     Indication: DRUG ABUSE
     Dosage: NOT PRESCRIBED AS A DRUG. DOSAGE AS IN DRUG ABUSE.
  3. ETHANOL [Suspect]
     Route: 048

REACTIONS (2)
  - DEATH [None]
  - DRUG TOXICITY [None]
